FAERS Safety Report 6573642-5 (Version None)
Quarter: 2010Q1

REPORT INFORMATION
  Report Type: 
  Country: None (occurrence: None)
  Receive Date: 20100208
  Receipt Date: 20100204
  Transmission Date: 20100710
  Serious: Yes (Hospitalization, Disabling)
  Sender: FDA-Public Use
  Company Number: DE-ROCHE-683627

PATIENT
  Sex: Female
  Weight: 160 kg

DRUGS (2)
  1. BEVACIZUMAB [Suspect]
     Indication: BREAST CANCER
     Dosage: LAST DOSE PRIOR TO SAE: 27 JAN 2010, DOSE 15, UNIT: 4
     Route: 042
     Dates: start: 20100106
  2. DOCETAXEL [Suspect]
     Indication: BREAST CANCER
     Dosage: LAST DOSE PRIOR TO SAE: 27 JAN 2010, DOSE 100, UNIT: 4
     Route: 042
     Dates: start: 20100106

REACTIONS (1)
  - MUCOSAL INFLAMMATION [None]
